FAERS Safety Report 24672097 (Version 1)
Quarter: 2024Q4

REPORT INFORMATION
  Report Type: Report from Study
  Country: IL (occurrence: IL)
  Receive Date: 20241127
  Receipt Date: 20241127
  Transmission Date: 20250115
  Serious: Yes (Hospitalization)
  Sender: ABBVIE
  Company Number: IL-ABBVIE-6020258

PATIENT
  Age: 20 Year
  Sex: Male

DRUGS (1)
  1. SKYRIZI [Suspect]
     Active Substance: RISANKIZUMAB-RZAA
     Indication: Crohn^s disease
     Dosage: FORM STRENGTH: 360 MG, DURATION TEXT: NO IMPROVEMENT
     Route: 058
     Dates: start: 20230525, end: 20240401

REACTIONS (2)
  - Gastrointestinal inflammation [Recovered/Resolved]
  - Drug ineffective [Unknown]
